FAERS Safety Report 4657380-1 (Version None)
Quarter: 2005Q2

REPORT INFORMATION
  Report Type: 
  Country: None (occurrence: None)
  Receive Date: 20050405
  Receipt Date: 20040625
  Transmission Date: 20051028
  Serious: Yes (Other)
  Sender: FDA-Public Use
  Company Number: 2004043573

PATIENT
  Sex: Female
  Weight: 56.6996 kg

DRUGS (8)
  1. GEODON [Suspect]
     Indication: SCHIZOPHRENIA
     Dosage: ORAL
     Route: 048
  2. SUDAFED 12 HOUR [Suspect]
     Indication: ILL-DEFINED DISORDER
  3. CAFFEINE (CAFFEINE) [Suspect]
     Indication: ILL-DEFINED DISORDER
  4. GUAIFENESIN (GUAIFENESIN) [Suspect]
     Indication: ILL-DEFINED DISORDER
  5. BENZTROPINE MESYLATE [Concomitant]
  6. ORAL CONTRACEPTIVE NOS (ORAL CONTRACEPTIVE NOS) [Concomitant]
  7. IBUPROFEN [Concomitant]
  8. ACETAMINOPHEN [Concomitant]

REACTIONS (10)
  - ABDOMINAL PAIN UPPER [None]
  - CONSTIPATION [None]
  - DIZZINESS [None]
  - DYSPHAGIA [None]
  - ERUCTATION [None]
  - FLATULENCE [None]
  - HYPERHIDROSIS [None]
  - ORTHOSTATIC HYPOTENSION [None]
  - RESPIRATORY RATE INCREASED [None]
  - TACHYCARDIA [None]
